FAERS Safety Report 8188068 (Version 2)
Quarter: 2012Q4

REPORT INFORMATION
  Report Type: 
  Country: US (occurrence: US)
  Receive Date: 20111018
  Receipt Date: 20121016
  Transmission Date: 20130627
  Serious: No
  Sender: FDA-Public Use
  Company Number: US-ASTRAZENECA-2010SE53270

PATIENT
  Age: 62 Year
  Sex: Female

DRUGS (7)
  1. SYMBICORT PMDI [Suspect]
     Indication: CHRONIC OBSTRUCTIVE PULMONARY DISEASE
     Dosage: 160/4.5 MCG UNKNOWN FREQUENCY
     Route: 055
  2. SYMBICORT PMDI [Suspect]
     Indication: CHRONIC OBSTRUCTIVE PULMONARY DISEASE
     Dosage: 80/4.5 MCG UNKNOWN FREQUENCY
     Route: 055
  3. SYMBICORT PMDI [Suspect]
     Indication: CHRONIC OBSTRUCTIVE PULMONARY DISEASE
     Dosage: 160/4.5 MCG DAILY
     Route: 055
  4. NEXIUM [Concomitant]
  5. ATENOLOL HCTZ [Concomitant]
  6. PLAQUENIL [Concomitant]
  7. SPIRIVA [Concomitant]

REACTIONS (9)
  - Speech disorder [Unknown]
  - Dyspnoea [Unknown]
  - Dysphonia [Unknown]
  - Oropharyngeal pain [Unknown]
  - Dysphonia [Unknown]
  - Nervousness [Unknown]
  - Blood pressure increased [Unknown]
  - Drug dispensing error [Unknown]
  - Drug dose omission [Unknown]
